FAERS Safety Report 4809187-X (Version None)
Quarter: 2005Q4

REPORT INFORMATION
  Report Type: 
  Country: None (occurrence: None)
  Receive Date: 20051025
  Receipt Date: 20051014
  Transmission Date: 20060501
  Serious: Yes (Other)
  Sender: FDA-Public Use
  Company Number: PHEH2005US11504

PATIENT
  Age: 72 Year
  Sex: Male
  Weight: 79 kg

DRUGS (4)
  1. LOTREL [Suspect]
     Indication: HYPERTENSION
     Route: 048
     Dates: start: 20030101, end: 20030101
  2. LIPITOR                                 /NET/ [Concomitant]
  3. HEPARIN [Concomitant]
     Indication: VASCULAR BYPASS GRAFT
     Dates: start: 19910101
  4. VITAMINS [Concomitant]

REACTIONS (4)
  - AORTIC ANEURYSM [None]
  - COUGH [None]
  - PNEUMONIA [None]
  - STENT PLACEMENT [None]
